FAERS Safety Report 10707098 (Version 1)
Quarter: 2015Q1

REPORT INFORMATION
  Report Type: Report from Study
  Country: CA (occurrence: CA)
  Receive Date: 20150113
  Receipt Date: 20150113
  Transmission Date: 20150721
  Serious: Yes (Hospitalization)
  Sender: FDA-Public Use
  Company Number: CA-JNJFOC-20150104703

PATIENT
  Age: 72 Year
  Sex: Female
  Weight: 68.04 kg

DRUGS (3)
  1. REMICADE [Suspect]
     Active Substance: INFLIXIMAB
     Indication: RHEUMATOID ARTHRITIS
     Route: 042
     Dates: start: 20140807
  2. PREDNISONE. [Concomitant]
     Active Substance: PREDNISONE
     Route: 048
  3. METHOTREXATE [Concomitant]
     Active Substance: METHOTREXATE
     Route: 048

REACTIONS (4)
  - Hyperhidrosis [Recovered/Resolved]
  - Hypotension [Recovered/Resolved]
  - Chest pain [Recovered/Resolved]
  - Loss of consciousness [Recovered/Resolved]

NARRATIVE: CASE EVENT DATE: 20141222
